FAERS Safety Report 13228517 (Version 1)
Quarter: 2017Q1

REPORT INFORMATION
  Report Type: Spontaneous
  Country: US (occurrence: US)
  Receive Date: 20170213
  Receipt Date: 20170213
  Transmission Date: 20170428
  Serious: No
  Sender: FDA-Public Use
  Company Number: US-ROCHE-1830294

PATIENT
  Age: 57 Year
  Sex: Female
  Weight: 90.35 kg

DRUGS (7)
  1. XOLAIR [Suspect]
     Active Substance: OMALIZUMAB
     Indication: URTICARIA
     Route: 058
     Dates: start: 201501, end: 20160624
  2. XOLAIR [Suspect]
     Active Substance: OMALIZUMAB
     Indication: IDIOPATHIC URTICARIA
  3. AVAPRO [Concomitant]
     Active Substance: IRBESARTAN
  4. CYMBALTA [Concomitant]
     Active Substance: DULOXETINE HYDROCHLORIDE
  5. PRAVASTATIN. [Concomitant]
     Active Substance: PRAVASTATIN
  6. GABAPENTIN. [Concomitant]
     Active Substance: GABAPENTIN
     Indication: PAIN
  7. ZYRTEC [Concomitant]
     Active Substance: CETIRIZINE HYDROCHLORIDE

REACTIONS (27)
  - Exostosis [Unknown]
  - Polyarthritis [Unknown]
  - Dysphonia [Not Recovered/Not Resolved]
  - Thrombocytopenia [Unknown]
  - Increased tendency to bruise [Unknown]
  - Cold sweat [Unknown]
  - Dizziness [Unknown]
  - Chest pain [Recovered/Resolved]
  - Myalgia [Recovered/Resolved]
  - Pharyngitis [Not Recovered/Not Resolved]
  - Bursitis [Not Recovered/Not Resolved]
  - Arthritis [Not Recovered/Not Resolved]
  - Lymphoedema [Not Recovered/Not Resolved]
  - Fibromyalgia [Not Recovered/Not Resolved]
  - Pain in jaw [Unknown]
  - Skin disorder [Unknown]
  - Pyrexia [Not Recovered/Not Resolved]
  - Sinusitis [Not Recovered/Not Resolved]
  - Hyperhidrosis [Unknown]
  - Serum sickness [Not Recovered/Not Resolved]
  - Oropharyngeal pain [Unknown]
  - Neuropathy peripheral [Recovered/Resolved]
  - Rash erythematous [Unknown]
  - Purpura [Recovered/Resolved]
  - Cardiac disorder [Unknown]
  - Arthralgia [Recovered/Resolved]
  - Ear pain [Not Recovered/Not Resolved]

NARRATIVE: CASE EVENT DATE: 201508
